FAERS Safety Report 7129344-X (Version None)
Quarter: 2010Q4

REPORT INFORMATION
  Report Type: 
  Country: None (occurrence: None)
  Receive Date: 20101130
  Receipt Date: 20101118
  Transmission Date: 20110411
  Serious: Yes (Hospitalization)
  Sender: FDA-Public Use
  Company Number: US-WATSON-2010-15108

PATIENT
  Sex: Female
  Weight: 69.841 kg

DRUGS (9)
  1. FIORICET [Suspect]
     Indication: HEADACHE
     Dosage: UNK
     Route: 065
     Dates: end: 20100920
  2. MERIDIA [Suspect]
     Indication: WEIGHT DECREASED
     Dosage: 10 MG, 1 IN 1 D
     Route: 065
     Dates: start: 20100101, end: 20100920
  3. GLYCOPYRROLATE INJECTION, USP [Suspect]
     Indication: PRODUCT USED FOR UNKNOWN INDICATION
     Dosage: 0.4 MG, DAILY
     Route: 042
     Dates: start: 20100923
  4. DECADRON [Suspect]
     Indication: PRODUCT USED FOR UNKNOWN INDICATION
     Dosage: 8 MG, DAILY
     Route: 042
     Dates: start: 20100923
  5. FENTANYL CITRATE [Suspect]
     Indication: PRODUCT USED FOR UNKNOWN INDICATION
     Dosage: 100 MCG, DAILY
     Route: 065
     Dates: start: 20100923
  6. MIDAZOLAM HCL [Suspect]
     Indication: PRODUCT USED FOR UNKNOWN INDICATION
     Dosage: 5 MG, DAILY
     Route: 042
     Dates: start: 20100923
  7. KETAMINE HYDROCHLORIDE [Suspect]
     Indication: PRODUCT USED FOR UNKNOWN INDICATION
     Dosage: 40 MG, DAILY
     Route: 042
     Dates: start: 20100923
  8. LIDOCAINE [Suspect]
     Indication: PRODUCT USED FOR UNKNOWN INDICATION
     Dosage: 108 MG, DAILY
     Route: 065
     Dates: start: 20100923
  9. FENTANYL CITRATE [Suspect]
     Dosage: 25 MCG, DAILY
     Route: 065
     Dates: start: 20100923

REACTIONS (4)
  - CONVERSION DISORDER [None]
  - GRAND MAL CONVULSION [None]
  - ORAL SURGERY [None]
  - PARTIAL SEIZURES [None]
